FAERS Safety Report 25321697 (Version 2)
Quarter: 2025Q2

REPORT INFORMATION
  Report Type: Report from Study
  Country: US (occurrence: US)
  Receive Date: 20250516
  Receipt Date: 20250604
  Transmission Date: 20250717
  Serious: Yes (Other)
  Sender: ASCENDIS PHARMA
  Company Number: US-ASCENDIS PHARMA-2025US008222

PATIENT

DRUGS (2)
  1. PALOPEGTERIPARATIDE [Suspect]
     Active Substance: PALOPEGTERIPARATIDE
     Indication: Hypoparathyroidism
     Route: 058
     Dates: start: 20250203, end: 202502
  2. PALOPEGTERIPARATIDE [Suspect]
     Active Substance: PALOPEGTERIPARATIDE
     Route: 058
     Dates: start: 202502, end: 20250227

REACTIONS (8)
  - Gastrointestinal disorder [Recovered/Resolved]
  - Swelling face [Recovered/Resolved]
  - Taste disorder [Unknown]
  - Burning sensation [Unknown]
  - Erythema [Recovered/Resolved]
  - Injection site urticaria [Recovering/Resolving]
  - Injection site reaction [Unknown]
  - Injection site pain [Recovering/Resolving]

NARRATIVE: CASE EVENT DATE: 20250201
